FAERS Safety Report 19254408 (Version 3)
Quarter: 2023Q1

REPORT INFORMATION
  Report Type: Spontaneous
  Country: CA (occurrence: CA)
  Receive Date: 20210513
  Receipt Date: 20230327
  Transmission Date: 20230418
  Serious: Yes (Other)
  Sender: FDA-Public Use
  Company Number: CA-SAMSUNG BIOEPIS-SB-2021-11371

PATIENT
  Age: 37 Year
  Sex: Male
  Weight: 80 kg

DRUGS (4)
  1. INFLIXIMAB [Suspect]
     Active Substance: INFLIXIMAB
     Indication: Crohn^s disease
     Route: 042
  2. INFLIXIMAB [Suspect]
     Active Substance: INFLIXIMAB
     Route: 042
  3. INFLIXIMAB [Suspect]
     Active Substance: INFLIXIMAB
     Route: 042
  4. INFLIXIMAB [Suspect]
     Active Substance: INFLIXIMAB
     Route: 042

REACTIONS (5)
  - Blood pressure diastolic decreased [Unknown]
  - Rectal haemorrhage [Unknown]
  - Intentional product use issue [Unknown]
  - Off label use [Unknown]
  - Incorrect dose administered [Unknown]
